FAERS Safety Report 6900553-5 (Version None)
Quarter: 2010Q3

REPORT INFORMATION
  Report Type: 
  Country: None (occurrence: None)
  Receive Date: 20100803
  Receipt Date: 20100723
  Transmission Date: 20110219
  Serious: Yes (Other)
  Sender: FDA-Public Use
  Company Number: FR-PFIZER INC-2010079510

PATIENT
  Age: 62 Year
  Sex: Female
  Weight: 72 kg

DRUGS (2)
  1. AROMASIN [Suspect]
     Dosage: 1 DF, 1X/DAY
     Dates: start: 20090701
  2. COSOPT [Concomitant]
     Indication: GLAUCOMA
     Dosage: UNK

REACTIONS (8)
  - AGITATION [None]
  - ANGER [None]
  - BLOOD CORTISOL INCREASED [None]
  - DISTURBANCE IN ATTENTION [None]
  - DRUG INTOLERANCE [None]
  - HEADACHE [None]
  - HEPATIC PAIN [None]
  - IRRITABILITY [None]
